FAERS Safety Report 7396144 (Version 2)
Quarter: 2013Q4

REPORT INFORMATION
  Report Type: Spontaneous
  Country: US (occurrence: None)
  Receive Date: 20100513
  Receipt Date: 20131015
  Transmission Date: 20140711
  Serious: Yes (Hospitalization, Other)
  Sender: FDA-Public Use
  Company Number: 2010S1002706

PATIENT
  Age: 70 Year
  Sex: Male
  Weight: 81.6 kg

DRUGS (6)
  1. SODIUM PHOSPHATE, DIBASIC [Suspect]
     Indication: COLONOSCOPY
     Dosage: 2 IN 24 HOURS, ORAL
     Route: 048
     Dates: start: 20050801, end: 20050801
  2. SODIUM PHOSPHATE, DIBASIC [Suspect]
     Indication: COLECTOMY
     Dosage: 2 IN 24 HOURS, ORAL
     Route: 048
     Dates: start: 20050801, end: 20050801
  3. ASPIRIN(ACETYLSALICYLIC ACID) [Concomitant]
  4. LISNIOPRIL(LISINOPRIL) [Concomitant]
  5. PRAVACHOL(PRAVASTATIN SODIUM) [Concomitant]
  6. METOPROLOL(METOPROLOL) [Concomitant]

REACTIONS (9)
  - Renal impairment [None]
  - Nausea [None]
  - Hiccups [None]
  - Vomiting projectile [None]
  - Diarrhoea [None]
  - Ileus [None]
  - Atrial fibrillation [None]
  - Renal failure chronic [None]
  - Renal failure acute [None]
